FAERS Safety Report 26103651 (Version 1)
Quarter: 2025Q4

REPORT INFORMATION
  Report Type: Spontaneous
  Country: CA (occurrence: CA)
  Receive Date: 20251129
  Receipt Date: 20251129
  Transmission Date: 20260118
  Serious: Yes (Other)
  Sender: CELLTRION
  Company Number: CA-CELLTRION INC.-2025CA042984

PATIENT

DRUGS (2)
  1. INFLECTRA [Suspect]
     Active Substance: INFLIXIMAB-DYYB
     Indication: Crohn^s disease
     Dosage: 400 MILLIGRAMS EVERY 8 WEEKS (Q8 WEEKS, 1 HOUR)
     Route: 042
     Dates: start: 20230829
  2. IMODIUM [Concomitant]
     Active Substance: LOPERAMIDE HYDROCHLORIDE

REACTIONS (4)
  - Colitis [Unknown]
  - Hyperaemia [Unknown]
  - Oedema [Unknown]
  - Therapeutic response changed [Unknown]
